FAERS Safety Report 7106977-8 (Version None)
Quarter: 2010Q4

REPORT INFORMATION
  Report Type: 
  Country: None (occurrence: None)
  Receive Date: 20101116
  Receipt Date: 20100908
  Transmission Date: 20110411
  Serious: No
  Sender: FDA-Public Use
  Company Number: US-ABBOTT-10P-163-0669235-00

PATIENT
  Sex: Male
  Weight: 74.91 kg

DRUGS (1)
  1. SIMCOR [Suspect]
     Indication: PRODUCT USED FOR UNKNOWN INDICATION
     Dosage: 1000-40MG AT BEDTIME
     Dates: start: 20100831, end: 20100903

REACTIONS (2)
  - FEELING HOT [None]
  - RASH [None]
